FAERS Safety Report 4362496-3 (Version None)
Quarter: 2004Q2

REPORT INFORMATION
  Report Type: 
  Country: None (occurrence: None)
  Receive Date: 20040521
  Receipt Date: 20021203
  Transmission Date: 20050107
  Serious: Yes (Other)
  Sender: FDA-Public Use
  Company Number: PHBS2002US14910

PATIENT
  Age: 53 Year
  Sex: Female

DRUGS (2)
  1. GLEEVEC [Suspect]
     Indication: CHRONIC MYELOID LEUKAEMIA
     Dosage: 400 MG/D
     Dates: start: 20010501
  2. GLEEVEC [Suspect]
     Dosage: 300 MG/D

REACTIONS (5)
  - ACUTE FEBRILE NEUTROPHILIC DERMATOSIS [None]
  - BONE MARROW DEPRESSION [None]
  - RASH [None]
  - SKIN LESION [None]
  - SKIN NODULE [None]
